FAERS Safety Report 24738695 (Version 1)
Quarter: 2024Q4

REPORT INFORMATION
  Report Type: Spontaneous
  Country: IT (occurrence: IT)
  Receive Date: 20241216
  Receipt Date: 20241216
  Transmission Date: 20250115
  Serious: Yes (Life-Threatening, Hospitalization, Other)
  Sender: TEVA
  Company Number: None

PATIENT
  Age: 25 Year
  Sex: Female

DRUGS (2)
  1. QUETIAPINE [Suspect]
     Active Substance: QUETIAPINE
     Indication: Schizophrenia
     Dosage: 50 MG 4 TABLETS
     Route: 048
     Dates: start: 20241031, end: 20241031
  2. EN [Suspect]
     Active Substance: DELORAZEPAM
     Indication: Anxiety
     Dosage: 2 MG 4 TABLETS
     Route: 048
     Dates: start: 20241031, end: 20241031

REACTIONS (4)
  - Drug abuse [Recovering/Resolving]
  - Toxicity to various agents [Recovering/Resolving]
  - Somnolence [Recovering/Resolving]
  - Persistent depressive disorder [Recovering/Resolving]

NARRATIVE: CASE EVENT DATE: 20241031
